FAERS Safety Report 8798630 (Version 1)
Quarter: 2012Q4

REPORT INFORMATION
  Report Type: Spontaneous
  Country: US (occurrence: None)
  Receive Date: 20120917
  Receipt Date: 20120917
  Transmission Date: 20130627
  Serious: Yes (Other)
  Sender: FDA-Public Use
  Company Number: None

PATIENT
  Age: 44 Year
  Sex: Female
  Weight: 99.79 kg

DRUGS (2)
  1. UNSPECIFIED INGREDIENT [Suspect]
     Indication: PAIN
     Dates: start: 20120822, end: 20120825
  2. UNSPECIFIED INGREDIENT [Suspect]
     Indication: LYME DISEASE
     Dates: start: 20120822, end: 20120825

REACTIONS (3)
  - Application site vesicles [None]
  - Application site pain [None]
  - Product quality issue [None]
